FAERS Safety Report 5924660-9 (Version None)
Quarter: 2008Q4

REPORT INFORMATION
  Report Type: 
  Country: None (occurrence: None)
  Receive Date: 20081016
  Receipt Date: 20080930
  Transmission Date: 20090506
  Serious: Yes (Other)
  Sender: FDA-Public Use
  Company Number: 8037587

PATIENT
  Sex: Female

DRUGS (4)
  1. LORTAB [Suspect]
     Indication: ENDOMETRIOSIS
     Dates: start: 20000101, end: 20070101
  2. REBIF [Suspect]
     Indication: MULTIPLE SCLEROSIS
     Dosage: 44 MCG 3/W
     Dates: start: 20070214, end: 20070801
  3. ZOLOFT [Suspect]
     Indication: DEPRESSION
     Dates: end: 20070101
  4. BIRTH CONTROL PILL [Suspect]
     Indication: CONTRACEPTION
     Dates: end: 20070101

REACTIONS (2)
  - DRUG EXPOSURE DURING PREGNANCY [None]
  - PREGNANCY ON ORAL CONTRACEPTIVE [None]
